FAERS Safety Report 6863134-8 (Version None)
Quarter: 2010Q3

REPORT INFORMATION
  Report Type: 
  Country: None (occurrence: None)
  Receive Date: 20100719
  Receipt Date: 20100707
  Transmission Date: 20110219
  Serious: Yes (Hospitalization)
  Sender: FDA-Public Use
  Company Number: 8031133

PATIENT
  Sex: Female
  Weight: 72 kg

DRUGS (14)
  1. CERTOLIZUMAB PEGOL (CERTOLIZUMAB PEGOL) [Suspect]
     Indication: RHEUMATOID ARTHRITIS
     Dosage: SEE IMAGE
     Route: 058
     Dates: start: 20050504, end: 20060418
  2. CERTOLIZUMAB PEGOL (CERTOLIZUMAB PEGOL) [Suspect]
     Indication: RHEUMATOID ARTHRITIS
     Dosage: SEE IMAGE
     Route: 058
     Dates: start: 20060503, end: 20080319
  3. CERTOLIZUMAB PEGOL (CERTOLIZUMAB PEGOL) [Suspect]
     Indication: RHEUMATOID ARTHRITIS
     Dosage: SEE IMAGE
     Route: 058
     Dates: start: 20080415
  4. METHOTREXATE [Concomitant]
  5. FOLIC ACID [Concomitant]
  6. METHYLPREDNISOLONE /00049601/ [Concomitant]
  7. HYDROCORTISON /00028601/ [Concomitant]
  8. FLUCON /00575101/ [Concomitant]
  9. AZOPT [Concomitant]
  10. DIPROPHOS [Concomitant]
  11. DETRALEX [Concomitant]
  12. OMEPRAZOLE [Concomitant]
  13. CALTRATE /00108001/ [Concomitant]
  14. LORISTA [Concomitant]

REACTIONS (13)
  - ANXIETY [None]
  - AORTIC VALVE INCOMPETENCE [None]
  - BACTERAEMIA [None]
  - BODY TEMPERATURE INCREASED [None]
  - CHEST PAIN [None]
  - CONSTIPATION [None]
  - DECREASED APPETITE [None]
  - ENDOCARDITIS [None]
  - RHEUMATOID ARTHRITIS [None]
  - STAPHYLOCOCCUS TEST POSITIVE [None]
  - STREPTOCOCCUS TEST POSITIVE [None]
  - VENOUS THROMBOSIS [None]
  - WEIGHT DECREASED [None]
